FAERS Safety Report 16991368 (Version 3)
Quarter: 2019Q4

REPORT INFORMATION
  Report Type: Spontaneous
  Country: US (occurrence: US)
  Receive Date: 20191104
  Receipt Date: 20191216
  Transmission Date: 20200122
  Serious: Yes (Hospitalization)
  Sender: FDA-Public Use
  Company Number: US-SHIRE-US201933870

PATIENT
  Age: 82 Year
  Sex: Female
  Weight: 110 kg

DRUGS (3)
  1. XIIDRA [Suspect]
     Active Substance: LIFITEGRAST
     Indication: DRY EYE
     Dosage: 2 GTT DROPS, 2X/DAY:BID
     Route: 047
     Dates: start: 2017
  2. LISINOPRIL. [Concomitant]
     Active Substance: LISINOPRIL
     Indication: BLOOD PRESSURE MEASUREMENT
  3. L THYROXINE [Concomitant]
     Active Substance: LEVOTHYROXINE SODIUM
     Indication: THYROID DISORDER

REACTIONS (1)
  - Joint dislocation postoperative [Recovered/Resolved]

NARRATIVE: CASE EVENT DATE: 20190615
